FAERS Safety Report 20982692 (Version 1)
Quarter: 2022Q2

REPORT INFORMATION
  Report Type: Report from Study
  Country: CN (occurrence: CN)
  Receive Date: 20220620
  Receipt Date: 20220620
  Transmission Date: 20220721
  Serious: Yes (Other)
  Sender: FDA-Public Use
  Company Number: CN-BAYER-2022A084814

PATIENT
  Age: 66 Year
  Sex: Male

DRUGS (4)
  1. REGORAFENIB [Suspect]
     Active Substance: REGORAFENIB
     Indication: Hepatic cancer
  2. REGORAFENIB [Suspect]
     Active Substance: REGORAFENIB
     Indication: Oesophageal carcinoma
  3. TORIPALIMAB [Suspect]
     Active Substance: TORIPALIMAB
     Indication: Hepatic cancer
     Dosage: 3 DF
  4. TORIPALIMAB [Suspect]
     Active Substance: TORIPALIMAB
     Indication: Oesophageal carcinoma

REACTIONS (2)
  - Myocarditis [Recovered/Resolved]
  - Myositis [None]

NARRATIVE: CASE EVENT DATE: 20190601
